FAERS Safety Report 12489128 (Version 2)
Quarter: 2016Q4

REPORT INFORMATION
  Report Type: Spontaneous
  Country: EE (occurrence: EE)
  Receive Date: 20160622
  Receipt Date: 20161118
  Transmission Date: 20170207
  Serious: Yes (Hospitalization)
  Sender: FDA-Public Use
  Company Number: ALCN2016EE004218

PATIENT
  Age: 31 Year
  Sex: Female

DRUGS (1)
  1. NEVANAC [Suspect]
     Active Substance: NEPAFENAC
     Indication: EYE LASER SURGERY
     Dosage: UNK
     Route: 047
     Dates: start: 20140326, end: 20160331

REACTIONS (4)
  - Vision blurred [Recovered/Resolved]
  - Drug prescribing error [Unknown]
  - Off label use [Unknown]
  - Corneal deposits [Not Recovered/Not Resolved]

NARRATIVE: CASE EVENT DATE: 201403
